FAERS Safety Report 9816044 (Version 1)
Quarter: 2014Q1

REPORT INFORMATION
  Report Type: Spontaneous
  Country: US (occurrence: US)
  Receive Date: 20140114
  Receipt Date: 20140114
  Transmission Date: 20141002
  Serious: Yes (Death)
  Sender: FDA-Public Use
  Company Number: US-PFIZER INC-2014006737

PATIENT
  Age: 48 Year
  Sex: Female

DRUGS (5)
  1. FENTANYL [Suspect]
  2. OXYCODONE HYDROCHLORIDE [Suspect]
  3. AMITRIPTYLINE [Suspect]
  4. PROMETHAZINE [Suspect]
  5. MIRTAZAPINE [Suspect]

REACTIONS (1)
  - Death [Fatal]
